FAERS Safety Report 9132195 (Version 1)
Quarter: 2013Q1

REPORT INFORMATION
  Report Type: Report from Study
  Country: US (occurrence: US)
  Receive Date: 20130301
  Receipt Date: 20130301
  Transmission Date: 20140127
  Serious: No
  Sender: FDA-Public Use
  Company Number: US-MYLANLABS-2012S1022883

PATIENT
  Age: 40 Year
  Sex: Male

DRUGS (4)
  1. AMNESTEEM CAPSULES [Suspect]
     Indication: ACNE
     Route: 048
     Dates: start: 20120730, end: 20120928
  2. AMNESTEEM CAPSULES [Suspect]
     Indication: ACNE
     Route: 048
     Dates: start: 20120929, end: 20121029
  3. CLARAVIS [Suspect]
     Indication: ACNE
     Route: 048
     Dates: start: 20120529, end: 20120627
  4. CLARAVIS [Suspect]
     Indication: ACNE
     Route: 048
     Dates: start: 20120628, end: 20120729

REACTIONS (1)
  - Alopecia [Not Recovered/Not Resolved]
